FAERS Safety Report 4772934-X (Version None)
Quarter: 2005Q3

REPORT INFORMATION
  Report Type: 
  Country: None (occurrence: None)
  Receive Date: 20050919
  Receipt Date: 20050913
  Transmission Date: 20060218
  Serious: Yes (Other)
  Sender: FDA-Public Use
  Company Number: US-JNJFOC-20050302201

PATIENT
  Sex: Female
  Weight: 88.45 kg

DRUGS (6)
  1. LEVAQUIN [Suspect]
  2. LEVAQUIN [Suspect]
  3. LEVAQUIN [Suspect]
  4. LEVAQUIN [Suspect]
  5. LEVAQUIN [Suspect]
     Indication: SINUSITIS
  6. PREMARIN [Concomitant]

REACTIONS (2)
  - DIABETES MELLITUS INSULIN-DEPENDENT [None]
  - FATIGUE [None]
